FAERS Safety Report 13486941 (Version 1)
Quarter: 2017Q2

REPORT INFORMATION
  Report Type: Spontaneous
  Country: PL (occurrence: PL)
  Receive Date: 20170426
  Receipt Date: 20170426
  Transmission Date: 20170830
  Serious: Yes (Other)
  Sender: FDA-Public Use
  Company Number: PL-TEVA-762387ROM

PATIENT
  Age: 50 Year
  Sex: Male

DRUGS (4)
  1. CISPLATIN. [Suspect]
     Active Substance: CISPLATIN
     Indication: PLEURAL MESOTHELIOMA MALIGNANT
     Dosage: RECEIVED SIX CHEMOTHERAPY CYCLES
     Route: 065
     Dates: start: 200706
  2. DEXAMETHASONE. [Suspect]
     Active Substance: DEXAMETHASONE
     Indication: STEROID THERAPY
     Route: 065
  3. FOLIC ACID. [Concomitant]
     Active Substance: FOLIC ACID
     Dosage: DAILY
     Route: 065
  4. PEMETREXED. [Suspect]
     Active Substance: PEMETREXED
     Indication: PLEURAL MESOTHELIOMA MALIGNANT
     Route: 065
     Dates: start: 200706

REACTIONS (2)
  - Diabetes mellitus [Unknown]
  - Renal function test abnormal [Unknown]
